FAERS Safety Report 15073881 (Version 1)
Quarter: 2018Q2

REPORT INFORMATION
  Report Type: Spontaneous
  Country: US (occurrence: US)
  Receive Date: 20180627
  Receipt Date: 20180627
  Transmission Date: 20180711
  Serious: No
  Sender: FDA-Public Use
  Company Number: US-BAYER-2018-121394

PATIENT
  Age: 83 Year
  Sex: Male
  Weight: 65.99 kg

DRUGS (2)
  1. MIRALAX [Suspect]
     Active Substance: POLYETHYLENE GLYCOL 3350
     Dosage: 17 G IN A 4-8 OZ BEVERAGE DOSE
     Route: 048
     Dates: start: 20180619
  2. PHILLIPS COLON HEALTH PROBIOTICS WITH METABOLISM SUPPORT [Concomitant]
     Active Substance: PROBIOTICS NOS
     Dosage: UNK

REACTIONS (1)
  - Underdose [Unknown]
